FAERS Safety Report 9771773 (Version 1)
Quarter: 2013Q3

REPORT INFORMATION
  Report Type: Spontaneous
  Country: US (occurrence: None)
  Receive Date: 20130916
  Receipt Date: 20130916
  Transmission Date: 20140515
  Serious: Yes (Hospitalization, Other)
  Sender: FDA-Public Use
  Company Number: CPI 4902

PATIENT
  Age: 66 Year
  Sex: Male

DRUGS (2)
  1. LACTULOSE [Suspect]
     Indication: CONSTIPATION
  2. BISACODIL [Concomitant]

REACTIONS (4)
  - Acute respiratory failure [None]
  - Phrenic nerve paralysis [None]
  - Autonomic nervous system imbalance [None]
  - Borrelia infection [None]
